FAERS Safety Report 25507659 (Version 1)
Quarter: 2025Q3

REPORT INFORMATION
  Report Type: Spontaneous
  Country: CN (occurrence: CN)
  Receive Date: 20250703
  Receipt Date: 20250703
  Transmission Date: 20251020
  Serious: Yes (Other)
  Sender: AMGEN
  Company Number: CN-SERVIER-S25008938

PATIENT

DRUGS (3)
  1. IVABRADINE [Suspect]
     Active Substance: IVABRADINE
     Indication: Cardiac failure
     Dosage: 5 MG, BID
     Route: 065
  2. MILRINONE [Suspect]
     Active Substance: MILRINONE
     Indication: Cardiac failure
     Dosage: 5 MG, QD
     Route: 040
  3. DEXTROSE [Concomitant]
     Active Substance: DEXTROSE MONOHYDRATE
     Indication: Product used for unknown indication
     Dosage: 250 ML, QD
     Route: 040

REACTIONS (4)
  - Arrhythmia [Unknown]
  - Nausea [Unknown]
  - Hypotension [Unknown]
  - Drug ineffective [Recovered/Resolved]
